FAERS Safety Report 8065336-4 (Version None)
Quarter: 2012Q1

REPORT INFORMATION
  Report Type: 
  Country: None (occurrence: None)
  Receive Date: 20120124
  Receipt Date: 20120119
  Transmission Date: 20120608
  Serious: Yes (Other)
  Sender: FDA-Public Use
  Company Number: US-JNJFOC-20120108814

PATIENT
  Sex: Female

DRUGS (12)
  1. RISPERDAL [Suspect]
     Route: 048
  2. RISPERDAL [Suspect]
     Route: 048
  3. CYMBALTA [Suspect]
     Indication: DEPRESSION
     Route: 065
  4. RISPERIDONE [Suspect]
     Indication: BIPOLAR DISORDER
     Route: 065
     Dates: end: 20110601
  5. RISPERIDONE [Suspect]
     Indication: SCHIZOPHRENIA
     Route: 065
     Dates: end: 20110601
  6. AMBIEN [Concomitant]
     Indication: SLEEP DISORDER
     Route: 065
  7. TOPIRAMATE [Concomitant]
     Indication: ANXIETY
     Route: 048
  8. RISPERDAL [Suspect]
     Indication: BIPOLAR DISORDER
     Route: 048
  9. RISPERDAL [Suspect]
     Indication: SCHIZOPHRENIA
     Route: 048
  10. DIET MEDICATION [Suspect]
     Indication: WEIGHT DECREASED
     Route: 065
  11. TOPAMAX [Concomitant]
     Indication: ANXIETY
     Route: 048
  12. DEPO-PROVERA [Suspect]
     Indication: CONTRACEPTION
     Dosage: EVERY 3 MONTHS
     Route: 065

REACTIONS (7)
  - DYSPNOEA [None]
  - DEPRESSION [None]
  - THERAPY CESSATION [None]
  - ADVERSE EVENT [None]
  - RHEUMATOID ARTHRITIS [None]
  - HYPOKINESIA [None]
  - PRODUCT QUALITY ISSUE [None]
